FAERS Safety Report 18840794 (Version 2)
Quarter: 2021Q1

REPORT INFORMATION
  Report Type: Spontaneous
  Country: US (occurrence: US)
  Receive Date: 20210203
  Receipt Date: 20210308
  Transmission Date: 20210419
  Serious: Yes (Hospitalization, Other)
  Sender: FDA-Public Use
  Company Number: US-BRISTOL-MYERS SQUIBB COMPANY-BMS-2021-008677

PATIENT
  Sex: Female

DRUGS (1)
  1. ORENCIA [Suspect]
     Active Substance: ABATACEPT
     Indication: RHEUMATOID ARTHRITIS
     Dosage: 125 MILLIGRAM, QWK
     Route: 058
     Dates: start: 20201204

REACTIONS (9)
  - Influenza like illness [Unknown]
  - Paralysis [Unknown]
  - Headache [Unknown]
  - Vision blurred [Unknown]
  - Balance disorder [Unknown]
  - Eye pain [Unknown]
  - Systemic lupus erythematosus [Unknown]
  - Diarrhoea [Unknown]
  - Glossodynia [Unknown]
